FAERS Safety Report 5248664-7 (Version None)
Quarter: 2007Q1

REPORT INFORMATION
  Report Type: 
  Country: None (occurrence: None)
  Receive Date: 20070227
  Receipt Date: 20070227
  Transmission Date: 20070707
  Serious: Yes (Hospitalization)
  Sender: FDA-Public Use
  Company Number: None

PATIENT
  Sex: Female
  Weight: 59 kg

DRUGS (5)
  1. CARBOPLATIN [Suspect]
     Dosage: 100 MG
  2. PACLITAXEL [Suspect]
     Dosage: 100/M2/DAY IV (DAY 1,8,15)CBDCA AUC 2 IV
     Route: 042
  3. VIT D [Concomitant]
  4. CALCIUM [Concomitant]
  5. IBUPROFEN [Concomitant]

REACTIONS (3)
  - CEREBRAL HAEMORRHAGE [None]
  - CEREBROVASCULAR ACCIDENT [None]
  - TREMOR [None]
